FAERS Safety Report 7412282-2 (Version None)
Quarter: 2011Q2

REPORT INFORMATION
  Report Type: 
  Country: None (occurrence: None)
  Receive Date: 20110413
  Receipt Date: 20110404
  Transmission Date: 20111010
  Serious: Yes (Other)
  Sender: FDA-Public Use
  Company Number: TR-ROCHE-769123

PATIENT
  Age: 43 Year
  Sex: Female

DRUGS (3)
  1. HERCEPTIN [Suspect]
     Dosage: LOADING DOSE, BOLUS THERAPY.
     Route: 065
  2. HERCEPTIN [Suspect]
     Dosage: DISCONTINUED.
     Route: 065
  3. DOXORUBICIN [Concomitant]

REACTIONS (1)
  - MITRAL VALVE INCOMPETENCE [None]
